FAERS Safety Report 14669960 (Version 1)
Quarter: 2018Q1

REPORT INFORMATION
  Report Type: Report from Study
  Country: IT (occurrence: IT)
  Receive Date: 20180322
  Receipt Date: 20180322
  Transmission Date: 20180509
  Serious: Yes (Other)
  Sender: FDA-Public Use
  Company Number: IT-BAYER-2018-050274

PATIENT
  Age: 75 Year
  Sex: Male

DRUGS (11)
  1. OMNIC [Concomitant]
     Active Substance: TAMSULOSIN HYDROCHLORIDE
     Dosage: UNK
  2. TAVOR [LORAZEPAM] [Concomitant]
     Active Substance: LORAZEPAM
     Dosage: UNK
  3. PANTORC [Concomitant]
     Active Substance: PANTOPRAZOLE SODIUM
     Dosage: UNK
  4. ALLOPURINOL. [Concomitant]
     Active Substance: ALLOPURINOL
     Dosage: UNK
  5. METOPROLOL. [Concomitant]
     Active Substance: METOPROLOL
     Dosage: UNK
  6. BRILIQUE [Suspect]
     Active Substance: TICAGRELOR
     Indication: THROMBOSIS PROPHYLAXIS
     Dosage: 1 DF, UNK
     Route: 048
     Dates: start: 20161005, end: 20170630
  7. KCL [Concomitant]
     Active Substance: POTASSIUM CHLORIDE
     Dosage: UNK
  8. TRIATEC [Concomitant]
     Active Substance: RAMIPRIL
     Dosage: UNK
  9. NORVASC [Concomitant]
     Active Substance: AMLODIPINE BESYLATE
     Dosage: UNK
  10. TORVAST [Concomitant]
     Active Substance: ATORVASTATIN
     Dosage: UNK
  11. CARDIOASPIRIN 100 MG COMPRESSE GASTRORESISTENTI [Suspect]
     Active Substance: ASPIRIN
     Indication: THROMBOSIS PROPHYLAXIS
     Dosage: 100 MG, UNK

REACTIONS (3)
  - Haematuria [Unknown]
  - Pain [Unknown]
  - Perineal pain [Unknown]

NARRATIVE: CASE EVENT DATE: 20170629
